FAERS Safety Report 8324918-2 (Version None)
Quarter: 2012Q2

REPORT INFORMATION
  Report Type: 
  Country: None (occurrence: None)
  Receive Date: 20120501
  Receipt Date: 20120426
  Transmission Date: 20120825
  Serious: Yes (Hospitalization)
  Sender: FDA-Public Use
  Company Number: CA-ABBOTT-12P-028-0918683-00

PATIENT
  Sex: Male
  Weight: 81 kg

DRUGS (1)
  1. HUMIRA [Suspect]
     Indication: PSORIASIS
     Route: 058
     Dates: start: 20120309, end: 20120316

REACTIONS (5)
  - SEPSIS [None]
  - IMMUNODEFICIENCY [None]
  - MECHANICAL VENTILATION [None]
  - PNEUMONIA [None]
  - PERICARDIAL EFFUSION [None]
